FAERS Safety Report 23892107 (Version 1)
Quarter: 2024Q2

REPORT INFORMATION
  Report Type: Spontaneous
  Country: US (occurrence: None)
  Receive Date: 20240524
  Receipt Date: 20240524
  Transmission Date: 20240716
  Serious: No
  Sender: FDA-Public Use
  Company Number: US-ROCHE-3344191

PATIENT
  Age: 48 Year
  Sex: Female
  Weight: 133 kg

DRUGS (10)
  1. ACTEMRA [Suspect]
     Active Substance: TOCILIZUMAB
     Indication: Product used for unknown indication
     Route: 065
  2. DUPIXENT [Suspect]
     Active Substance: DUPILUMAB
     Indication: Dermatitis atopic
     Route: 058
     Dates: start: 20230324
  3. VITAMIN B [Concomitant]
     Active Substance: VITAMIN B
  4. BERBERINE [Concomitant]
     Active Substance: BERBERINE
  5. ARGININE [Concomitant]
     Active Substance: ARGININE
  6. FISH OIL [Concomitant]
     Active Substance: FISH OIL
  7. SERTRALINE HYDROCHLORIDE [Concomitant]
     Active Substance: SERTRALINE HYDROCHLORIDE
  8. LISINOPRIL [Concomitant]
     Active Substance: LISINOPRIL
  9. UBIDECARENONE [Concomitant]
     Active Substance: UBIDECARENONE
  10. CINNAMOMUM CASSIA [Concomitant]

REACTIONS (4)
  - Lymphadenopathy [Unknown]
  - Pain in jaw [Recovered/Resolved]
  - Injection site pain [Not Recovered/Not Resolved]
  - Oral herpes [Unknown]

NARRATIVE: CASE EVENT DATE: 20230324
